FAERS Safety Report 4851483-4 (Version None)
Quarter: 2005Q4

REPORT INFORMATION
  Report Type: 
  Country: None (occurrence: None)
  Receive Date: 20051212
  Receipt Date: 20051129
  Transmission Date: 20060501
  Serious: Yes (Disabling, Other)
  Sender: FDA-Public Use
  Company Number: PHBS2005GR17799

PATIENT
  Age: 56 Year
  Sex: Male

DRUGS (2)
  1. ZOMETA [Suspect]
     Indication: MULTIPLE MYELOMA
     Dates: start: 19880701, end: 20040401
  2. CORTICOSTEROIDS [Concomitant]
     Route: 065

REACTIONS (3)
  - DENTURE WEARER [None]
  - OSTEONECROSIS [None]
  - TOOTH EXTRACTION [None]
